FAERS Safety Report 7151960-X (Version None)
Quarter: 2010Q4

REPORT INFORMATION
  Report Type: 
  Country: None (occurrence: None)
  Receive Date: 20101210
  Receipt Date: 20101202
  Transmission Date: 20110411
  Serious: Yes (Hospitalization, Other)
  Sender: FDA-Public Use
  Company Number: US-AMGEN-USASP2010005325

PATIENT

DRUGS (39)
  1. NPLATE [Suspect]
     Indication: IDIOPATHIC THROMBOCYTOPENIC PURPURA
     Dosage: 12 A?G/KG, QWK
     Dates: start: 20100513
  2. NPLATE [Suspect]
     Dosage: 1 A?G/KG, UNK
     Dates: start: 20100513
  3. NPLATE [Suspect]
     Dosage: 2 A?G/KG, UNK
     Dates: start: 20100518
  4. NPLATE [Suspect]
     Dosage: 3 A?G/KG, UNK
     Dates: start: 20100525
  5. NPLATE [Suspect]
     Dosage: 3 A?G/KG, UNK
     Dates: start: 20100603
  6. NPLATE [Suspect]
     Dosage: 3 A?G/KG, UNK
     Dates: start: 20100611
  7. NPLATE [Suspect]
     Dosage: 4 A?G/KG, UNK
     Dates: start: 20100614
  8. NPLATE [Suspect]
     Dosage: 4 UNK, UNK
     Dates: start: 20100618
  9. NPLATE [Suspect]
     Dosage: 5 A?G/KG, UNK
     Dates: start: 20100622
  10. NPLATE [Suspect]
     Dosage: 6 A?G/KG, UNK
     Dates: start: 20100628
  11. NPLATE [Suspect]
     Dosage: 7 A?G/KG, UNK
     Dates: start: 20100706
  12. NPLATE [Suspect]
     Dosage: 8 A?G/KG, UNK
     Dates: start: 20100712
  13. NPLATE [Suspect]
     Dosage: 8 A?G/KG, UNK
     Dates: start: 20100719
  14. NPLATE [Suspect]
     Dosage: 9 A?G/KG, UNK
     Dates: start: 20100726
  15. NPLATE [Suspect]
     Dosage: 9 A?G/KG, UNK
     Dates: start: 20100802
  16. NPLATE [Suspect]
     Dosage: 10 A?G/KG, UNK
     Dates: start: 20100809
  17. NPLATE [Suspect]
     Dosage: 11 A?G/KG, UNK
     Dates: start: 20100816
  18. NPLATE [Suspect]
     Dosage: 12 A?G/KG, UNK
     Dates: start: 20100823
  19. NPLATE [Suspect]
     Dosage: 1000 A?G/KG, UNK
     Dates: start: 20100830
  20. NPLATE [Suspect]
     Dosage: 1000 A?G, UNK
     Dates: start: 20100913
  21. NPLATE [Suspect]
     Dosage: 1000 A?G, UNK
     Dates: start: 20100923
  22. NPLATE [Suspect]
     Dosage: 1000 A?G, UNK
     Dates: start: 20101008
  23. NPLATE [Suspect]
     Dosage: 1000 A?G, UNK
     Dates: start: 20101014
  24. NPLATE [Suspect]
     Dosage: 1000 A?G, UNK
     Dates: start: 20101022
  25. NPLATE [Suspect]
     Dosage: 1000 A?G, UNK
     Dates: start: 20101029
  26. IVIGLOB-EX [Concomitant]
     Indication: IDIOPATHIC THROMBOCYTOPENIC PURPURA
     Dosage: 30 G, UNK
     Dates: start: 20100618
  27. IVIGLOB-EX [Concomitant]
     Dosage: 30 G, UNK
     Dates: start: 20100712
  28. IVIGLOB-EX [Concomitant]
     Dosage: 30 G, UNK
     Dates: start: 20100726
  29. IVIGLOB-EX [Concomitant]
     Dosage: 30 UNK, UNK
     Dates: start: 20100823
  30. IVIGLOB-EX [Concomitant]
     Dosage: 30 G, UNK
     Dates: start: 20100830
  31. IVIGLOB-EX [Concomitant]
     Dosage: 30 G, UNK
     Dates: start: 20100913
  32. IVIGLOB-EX [Concomitant]
     Dosage: 30 G, UNK
     Dates: start: 20101008
  33. IVIGLOB-EX [Concomitant]
     Dosage: 30 G, UNK
     Dates: start: 20101014
  34. IVIGLOB-EX [Concomitant]
     Dosage: 30 G, UNK
     Dates: start: 20101022
  35. IVIGLOB-EX [Concomitant]
     Dosage: 30 G, UNK
     Dates: start: 20101102
  36. IVIGLOB-EX [Concomitant]
     Dosage: 30 G, UNK
     Dates: start: 20101129
  37. IVIGLOB-EX [Concomitant]
     Dosage: 30 G, UNK
     Dates: start: 20100513
  38. IVIGLOB-EX [Concomitant]
     Dosage: 30 G, UNK
     Dates: start: 20100816
  39. WHOLE BLOOD [Concomitant]
     Indication: IDIOPATHIC THROMBOCYTOPENIC PURPURA

REACTIONS (2)
  - DRUG INEFFECTIVE [None]
  - PLATELET COUNT DECREASED [None]
